FAERS Safety Report 19586382 (Version 1)
Quarter: 2021Q3

REPORT INFORMATION
  Report Type: Spontaneous
  Country: US (occurrence: US)
  Receive Date: 20210720
  Receipt Date: 20210720
  Transmission Date: 20211014
  Serious: Yes (Other)
  Sender: FDA-Public Use
  Company Number: US-INCYTE CORPORATION-2021IN006375

PATIENT

DRUGS (1)
  1. JAKAFI [Suspect]
     Active Substance: RUXOLITINIB
     Indication: ANAEMIA
     Dosage: 20 MILLIGRAM, BID
     Route: 048
     Dates: start: 20210331

REACTIONS (3)
  - Off label use [Unknown]
  - Coronary artery occlusion [Unknown]
  - Cardiac stress test abnormal [Unknown]

NARRATIVE: CASE EVENT DATE: 20210331
